FAERS Safety Report 7413432-4 (Version None)
Quarter: 2011Q2

REPORT INFORMATION
  Report Type: 
  Country: None (occurrence: None)
  Receive Date: 20110413
  Receipt Date: 20110401
  Transmission Date: 20111010
  Serious: Yes (Other)
  Sender: FDA-Public Use
  Company Number: PHHY2011US27315

PATIENT
  Sex: Male
  Weight: 78.47 kg

DRUGS (6)
  1. EXJADE [Suspect]
     Indication: MYELODYSPLASTIC SYNDROME
     Dosage: 1500 MG, DAILY
     Route: 048
  2. CEPHALEXIN [Concomitant]
  3. OMEPRAZOLE [Concomitant]
  4. ACETAMINOPHEN [Concomitant]
  5. HYDROCHLOROTHIAZIDE [Concomitant]
  6. POTASSIUM [Concomitant]

REACTIONS (1)
  - SQUAMOUS CELL CARCINOMA [None]
